FAERS Safety Report 21240094 (Version 6)
Quarter: 2023Q1

REPORT INFORMATION
  Report Type: Spontaneous
  Country: FR (occurrence: FR)
  Receive Date: 20220822
  Receipt Date: 20230123
  Transmission Date: 20230418
  Serious: Yes (Death, Life-Threatening, Hospitalization, Other)
  Sender: FDA-Public Use
  Company Number: FR-EMA-DD-20220712-186141-085342

PATIENT
  Age: 96 Year
  Sex: Female

DRUGS (10)
  1. LANSOPRAZOLE [Suspect]
     Active Substance: LANSOPRAZOLE
     Indication: Product used for unknown indication
     Dosage: UNK
     Route: 065
  2. AMOXICILLIN\CLAVULANIC ACID [Suspect]
     Active Substance: AMOXICILLIN\CLAVULANIC ACID
     Indication: Acute pulmonary oedema
     Dosage: UNK
     Route: 048
     Dates: start: 20191026, end: 20191028
  3. AMOXICILLIN\CLAVULANIC ACID [Suspect]
     Active Substance: AMOXICILLIN\CLAVULANIC ACID
     Indication: Pneumonia
     Dosage: UNK
     Route: 065
  4. ENOXAPARIN [Suspect]
     Active Substance: ENOXAPARIN
     Indication: Acute pulmonary oedema
     Dosage: 1 DOSAGE FORM (1 DF)
     Route: 058
     Dates: start: 20191127, end: 20191128
  5. ENOXAPARIN [Suspect]
     Active Substance: ENOXAPARIN
     Indication: Pneumonia
     Dosage: UNK
     Route: 065
  6. LOVENOX [Suspect]
     Active Substance: ENOXAPARIN SODIUM
     Indication: Atrial fibrillation
     Dosage: 1 DOSAGE FORM
     Route: 058
     Dates: start: 20191127, end: 20191128
  7. ISOSORBIDE DINITRATE [Concomitant]
     Active Substance: ISOSORBIDE DINITRATE
     Indication: Acute pulmonary oedema
     Dosage: UNK
     Route: 065
  8. ISOSORBIDE DINITRATE [Concomitant]
     Active Substance: ISOSORBIDE DINITRATE
     Indication: Pneumonia
  9. FUROSEMIDE [Concomitant]
     Active Substance: FUROSEMIDE
     Indication: Acute pulmonary oedema
     Dosage: UNK
     Route: 065
  10. FUROSEMIDE [Concomitant]
     Active Substance: FUROSEMIDE
     Indication: Pneumonia

REACTIONS (9)
  - Multiple organ dysfunction syndrome [Fatal]
  - Cardiac failure [Fatal]
  - Septic shock [Fatal]
  - Renal failure [Fatal]
  - Condition aggravated [Fatal]
  - Blister [Fatal]
  - Generalised bullous fixed drug eruption [Unknown]
  - Product prescribing error [Unknown]
  - Medication error [Unknown]

NARRATIVE: CASE EVENT DATE: 20191028
